FAERS Safety Report 26210085 (Version 1)
Quarter: 2025Q4

REPORT INFORMATION
  Report Type: Spontaneous
  Country: EU (occurrence: EU)
  Receive Date: 20251229
  Receipt Date: 20251229
  Transmission Date: 20260118
  Serious: Yes (Other)
  Sender: MYLAN
  Company Number: EU-SANDOZ-SDZ2025SI093174

PATIENT
  Age: 78 Year
  Sex: Female

DRUGS (44)
  1. CITALOPRAM [Suspect]
     Active Substance: CITALOPRAM
     Indication: Product used for unknown indication
     Dosage: UNK
  2. CITALOPRAM [Suspect]
     Active Substance: CITALOPRAM
     Dosage: UNK
     Route: 065
  3. CITALOPRAM [Suspect]
     Active Substance: CITALOPRAM
     Dosage: UNK
     Route: 065
  4. CITALOPRAM [Suspect]
     Active Substance: CITALOPRAM
     Dosage: UNK
  5. ROSUVASTATIN [Suspect]
     Active Substance: ROSUVASTATIN
     Indication: Product used for unknown indication
     Dosage: UNK
  6. ROSUVASTATIN [Suspect]
     Active Substance: ROSUVASTATIN
     Dosage: UNK
     Route: 065
  7. ROSUVASTATIN [Suspect]
     Active Substance: ROSUVASTATIN
     Dosage: UNK
     Route: 065
  8. ROSUVASTATIN [Suspect]
     Active Substance: ROSUVASTATIN
     Dosage: UNK
  9. FUROSEMIDE [Suspect]
     Active Substance: FUROSEMIDE
     Indication: Product used for unknown indication
     Dosage: UNK
  10. FUROSEMIDE [Suspect]
     Active Substance: FUROSEMIDE
     Dosage: UNK
     Route: 065
  11. FUROSEMIDE [Suspect]
     Active Substance: FUROSEMIDE
     Dosage: UNK
     Route: 065
  12. FUROSEMIDE [Suspect]
     Active Substance: FUROSEMIDE
     Dosage: UNK
  13. CANDESARTAN [Suspect]
     Active Substance: CANDESARTAN
     Indication: Product used for unknown indication
     Dosage: UNK
  14. CANDESARTAN [Suspect]
     Active Substance: CANDESARTAN
     Dosage: UNK
     Route: 065
  15. CANDESARTAN [Suspect]
     Active Substance: CANDESARTAN
     Dosage: UNK
     Route: 065
  16. CANDESARTAN [Suspect]
     Active Substance: CANDESARTAN
     Dosage: UNK
  17. ESOMEPRAZOLE [Suspect]
     Active Substance: ESOMEPRAZOLE
     Indication: Product used for unknown indication
     Dosage: UNK
  18. ESOMEPRAZOLE [Suspect]
     Active Substance: ESOMEPRAZOLE
     Dosage: UNK
     Route: 065
  19. ESOMEPRAZOLE [Suspect]
     Active Substance: ESOMEPRAZOLE
     Dosage: UNK
     Route: 065
  20. ESOMEPRAZOLE [Suspect]
     Active Substance: ESOMEPRAZOLE
     Dosage: UNK
  21. BISOPROLOL [Suspect]
     Active Substance: BISOPROLOL
     Indication: Product used for unknown indication
     Dosage: UNK
  22. BISOPROLOL [Suspect]
     Active Substance: BISOPROLOL
     Dosage: UNK
     Route: 065
  23. BISOPROLOL [Suspect]
     Active Substance: BISOPROLOL
     Dosage: UNK
     Route: 065
  24. BISOPROLOL [Suspect]
     Active Substance: BISOPROLOL
     Dosage: UNK
  25. SPIRONOLACTONE [Suspect]
     Active Substance: SPIRONOLACTONE
     Indication: Product used for unknown indication
     Dosage: UNK
  26. SPIRONOLACTONE [Suspect]
     Active Substance: SPIRONOLACTONE
     Dosage: UNK
     Route: 065
  27. SPIRONOLACTONE [Suspect]
     Active Substance: SPIRONOLACTONE
     Dosage: UNK
     Route: 065
  28. SPIRONOLACTONE [Suspect]
     Active Substance: SPIRONOLACTONE
     Dosage: UNK
  29. BECLOMETHASONE\FORMOTEROL [Suspect]
     Active Substance: BECLOMETHASONE\FORMOTEROL
     Indication: Product used for unknown indication
     Dosage: UNK
  30. BECLOMETHASONE\FORMOTEROL [Suspect]
     Active Substance: BECLOMETHASONE\FORMOTEROL
     Dosage: UNK
     Route: 065
  31. BECLOMETHASONE\FORMOTEROL [Suspect]
     Active Substance: BECLOMETHASONE\FORMOTEROL
     Dosage: UNK
     Route: 065
  32. BECLOMETHASONE\FORMOTEROL [Suspect]
     Active Substance: BECLOMETHASONE\FORMOTEROL
     Dosage: UNK
  33. CALCITRIOL [Suspect]
     Active Substance: CALCITRIOL
     Indication: Product used for unknown indication
     Dosage: UNK
  34. CALCITRIOL [Suspect]
     Active Substance: CALCITRIOL
     Dosage: UNK
     Route: 065
  35. CALCITRIOL [Suspect]
     Active Substance: CALCITRIOL
     Dosage: UNK
     Route: 065
  36. CALCITRIOL [Suspect]
     Active Substance: CALCITRIOL
     Dosage: UNK
  37. VITAMIN D3 [Suspect]
     Active Substance: CHOLECALCIFEROL
     Indication: Product used for unknown indication
     Dosage: UNK
  38. VITAMIN D3 [Suspect]
     Active Substance: CHOLECALCIFEROL
     Dosage: UNK
     Route: 065
  39. VITAMIN D3 [Suspect]
     Active Substance: CHOLECALCIFEROL
     Dosage: UNK
     Route: 065
  40. VITAMIN D3 [Suspect]
     Active Substance: CHOLECALCIFEROL
     Dosage: UNK
  41. LERCANIDIPINE [Suspect]
     Active Substance: LERCANIDIPINE
     Indication: Product used for unknown indication
     Dosage: UNK
  42. LERCANIDIPINE [Suspect]
     Active Substance: LERCANIDIPINE
     Dosage: UNK
     Route: 065
  43. LERCANIDIPINE [Suspect]
     Active Substance: LERCANIDIPINE
     Dosage: UNK
     Route: 065
  44. LERCANIDIPINE [Suspect]
     Active Substance: LERCANIDIPINE
     Dosage: UNK

REACTIONS (5)
  - Chronic kidney disease [Unknown]
  - Asthenia [Unknown]
  - Fatigue [Unknown]
  - Arthralgia [Unknown]
  - Back pain [Unknown]
